FAERS Safety Report 23463775 (Version 1)
Quarter: 2024Q1

REPORT INFORMATION
  Report Type: Spontaneous
  Country: FR (occurrence: FR)
  Receive Date: 20240201
  Receipt Date: 20240201
  Transmission Date: 20240410
  Serious: Yes (Other)
  Sender: FDA-Public Use
  Company Number: FR-BIOVITRUM-2024-FR-001428

PATIENT
  Age: 16 Month
  Weight: 9 kg

DRUGS (1)
  1. KINERET [Suspect]
     Active Substance: ANAKINRA
     Indication: Product used for unknown indication
     Dates: start: 2023

REACTIONS (2)
  - Drug reaction with eosinophilia and systemic symptoms [Unknown]
  - Splenomegaly [Unknown]
